FAERS Safety Report 23967336 (Version 2)
Quarter: 2024Q2

REPORT INFORMATION
  Report Type: Spontaneous
  Country: US (occurrence: US)
  Receive Date: 20240612
  Receipt Date: 20240612
  Transmission Date: 20240715
  Serious: No
  Sender: FDA-Public Use
  Company Number: US-AADI BIOSCIENCE, INC-24ABI000045

PATIENT

DRUGS (1)
  1. FYARRO [Suspect]
     Active Substance: SIROLIMUS
     Indication: Perivascular epithelioid cell tumour
     Dosage: UNK
     Route: 042
     Dates: start: 202309, end: 202311

REACTIONS (1)
  - Drug ineffective [Unknown]
